FAERS Safety Report 9354594 (Version 1)
Quarter: 2013Q2

REPORT INFORMATION
  Report Type: Spontaneous
  Country: CA (occurrence: CA)
  Receive Date: 20130618
  Receipt Date: 20130618
  Transmission Date: 20140414
  Serious: Yes (Hospitalization)
  Sender: FDA-Public Use
  Company Number: CA-FRI-1000045931

PATIENT
  Age: 66 Year
  Sex: Female

DRUGS (1)
  1. TEFLARO [Suspect]
     Dosage: 1200 MG
     Dates: start: 20130531, end: 20130607

REACTIONS (4)
  - Respiratory disorder [Unknown]
  - General physical health deterioration [Unknown]
  - Nocardiosis [Unknown]
  - Enterococcal infection [Unknown]
